FAERS Safety Report 4948769-1 (Version None)
Quarter: 2006Q1

REPORT INFORMATION
  Report Type: 
  Country: None (occurrence: None)
  Receive Date: 20060321
  Receipt Date: 20060309
  Transmission Date: 20060701
  Serious: Yes (Hospitalization)
  Sender: FDA-Public Use
  Company Number: JP-JNJFOC-20050904899

PATIENT
  Sex: Male
  Weight: 70 kg

DRUGS (22)
  1. REMICADE [Suspect]
     Route: 042
  2. REMICADE [Suspect]
     Indication: RHEUMATOID ARTHRITIS
     Route: 042
  3. MEDROL [Suspect]
     Route: 048
  4. MEDROL [Suspect]
     Route: 048
  5. MEDROL [Suspect]
     Route: 048
  6. MEDROL [Suspect]
     Route: 048
  7. MEDROL [Suspect]
     Indication: DERMATOMYOSITIS
     Route: 048
  8. PROGRAF [Suspect]
     Indication: RHEUMATOID ARTHRITIS
     Route: 048
  9. PROGRAF [Suspect]
     Indication: DERMATOMYOSITIS
     Route: 048
  10. SOLU-MEDROL [Concomitant]
     Dosage: ROUTE OF ADMINISTRATION DR
  11. SOLU-MEDROL [Concomitant]
     Indication: DERMATOMYOSITIS
     Dosage: ROUTE OF ADMINISTRATION DR
  12. PREDONINE [Concomitant]
  13. PREDONINE [Concomitant]
     Indication: DERMATOMYOSITIS
  14. ENDOXAN [Concomitant]
  15. ENDOXAN [Concomitant]
  16. ENDOXAN [Concomitant]
  17. ENDOXAN [Concomitant]
  18. FARNEZONE [Concomitant]
     Indication: DERMATOMYOSITIS
     Dosage: ROUTE OF ADMINISTRATION OD
  19. MAXIPIME [Concomitant]
     Indication: INFECTION
     Route: 042
  20. DEXAMETHASONE PALMITATE [Concomitant]
     Dosage: DOSE 1 AMP
     Route: 042
  21. DEXAMETHASONE PALMITATE [Concomitant]
     Dosage: DOSE 1 AMP
     Route: 042
  22. DEXAMETHASONE PALMITATE [Concomitant]
     Indication: DERMATOMYOSITIS
     Route: 042

REACTIONS (1)
  - PULMONARY TUBERCULOSIS [None]
